FAERS Safety Report 15791372 (Version 3)
Quarter: 2019Q2

REPORT INFORMATION
  Report Type: Report from Study
  Country: US (occurrence: US)
  Receive Date: 20190104
  Receipt Date: 20190626
  Transmission Date: 20190711
  Serious: Yes (Other)
  Sender: FDA-Public Use
  Company Number: US-MYLANLABS-2018M1089540

PATIENT
  Age: 31 Year
  Sex: Female
  Weight: 91 kg

DRUGS (2)
  1. TEGATOL [Concomitant]
     Indication: SEIZURE
     Dosage: UNK, BID (ONCE IN THE MORNING ONCE AT NIGHT)
  2. GLATIRAMER ACETATE INJECTION [Suspect]
     Active Substance: GLATIRAMER ACETATE
     Indication: RELAPSING-REMITTING MULTIPLE SCLEROSIS
     Dosage: UNK
     Route: 058

REACTIONS (3)
  - Diplopia [Unknown]
  - Drug ineffective [Unknown]
  - Vertigo [Unknown]

NARRATIVE: CASE EVENT DATE: 20181123
